FAERS Safety Report 7379618-2 (Version None)
Quarter: 2011Q1

REPORT INFORMATION
  Report Type: 
  Country: None (occurrence: None)
  Receive Date: 20110329
  Receipt Date: 20110321
  Transmission Date: 20110831
  Serious: Yes (Hospitalization)
  Sender: FDA-Public Use
  Company Number: US-US-EMD SERONO, INC.-7047165

PATIENT
  Sex: Female

DRUGS (3)
  1. OXYBUTYNIN [Suspect]
     Dates: end: 20110101
  2. BACLOFEN [Suspect]
     Dates: end: 20110101
  3. REBIF [Suspect]
     Indication: PRODUCT USED FOR UNKNOWN INDICATION
     Route: 058
     Dates: start: 20110204

REACTIONS (4)
  - ABDOMINAL DISTENSION [None]
  - RASH [None]
  - OEDEMA PERIPHERAL [None]
  - UNEVALUABLE EVENT [None]
